FAERS Safety Report 8877654 (Version 1)
Quarter: 2012Q4

REPORT INFORMATION
  Report Type: Spontaneous
  Country: DE (occurrence: None)
  Receive Date: 20121025
  Receipt Date: 20121025
  Transmission Date: 20130627
  Serious: Yes (Hospitalization)
  Sender: FDA-Public Use
  Company Number: DSA_59942_2012

PATIENT
  Age: 22 Year
  Sex: Female

DRUGS (3)
  1. ELONTRIL [Suspect]
     Route: 048
     Dates: start: 20120930, end: 20120930
  2. DOMINAL [Suspect]
     Route: 048
     Dates: start: 20120930, end: 20120930
  3. ETHANOL [Suspect]
     Route: 048
     Dates: start: 20120930, end: 20120930

REACTIONS (3)
  - Somnolence [None]
  - Hypotension [None]
  - Tachycardia [None]
